FAERS Safety Report 12667257 (Version 1)
Quarter: 2016Q3

REPORT INFORMATION
  Report Type: Spontaneous
  Country: US (occurrence: None)
  Receive Date: 20160818
  Receipt Date: 20160818
  Transmission Date: 20161109
  Serious: Yes (Disabling, Other)
  Sender: FDA-Public Use
  Company Number: None

PATIENT
  Age: 63 Year
  Sex: Female
  Weight: 76.2 kg

DRUGS (2)
  1. LEVOFLOXACIN 750MG TALBET AUROBINDO [Suspect]
     Active Substance: LEVOFLOXACIN
     Indication: PNEUMONIA
     Route: 048
     Dates: start: 20160524
  2. LEVOFLOXACIN 750MG TALBET AUROBINDO [Suspect]
     Active Substance: LEVOFLOXACIN
     Indication: SEPSIS
     Route: 048
     Dates: start: 20160524

REACTIONS (4)
  - Tendon disorder [None]
  - Heart rate increased [None]
  - Asthenia [None]
  - Mental disorder [None]

NARRATIVE: CASE EVENT DATE: 20160530
